FAERS Safety Report 20246558 (Version 1)
Quarter: 2021Q4

REPORT INFORMATION
  Report Type: Spontaneous
  Country: US (occurrence: US)
  Receive Date: 20211229
  Receipt Date: 20211229
  Transmission Date: 20220303
  Serious: Yes (Hospitalization, Other)
  Sender: FDA-Public Use
  Company Number: US-LUPIN PHARMACEUTICALS INC.-2021-25714

PATIENT
  Age: 50 Year
  Sex: Male

DRUGS (12)
  1. VORICONAZOLE [Suspect]
     Active Substance: VORICONAZOLE
     Indication: Geotrichum infection
     Dosage: UNK
     Route: 065
  2. DEXAMETHASONE [Concomitant]
     Active Substance: DEXAMETHASONE
     Indication: COVID-19
     Dosage: UNK
     Route: 065
  3. TOCILIZUMAB [Concomitant]
     Active Substance: TOCILIZUMAB
     Indication: COVID-19
     Dosage: UNK
     Route: 065
  4. ANAKINRA [Concomitant]
     Active Substance: ANAKINRA
     Indication: COVID-19
     Dosage: UNK
     Route: 065
  5. BARICITINIB [Concomitant]
     Active Substance: BARICITINIB
     Indication: COVID-19
     Dosage: UNK
     Route: 065
  6. COVID-19 CONVALESCENT PLASMA [Concomitant]
     Active Substance: COVID-19 CONVALESCENT PLASMA
     Indication: COVID-19
     Dosage: UNK
     Route: 065
  7. ACETYLCYSTEINE [Concomitant]
     Active Substance: ACETYLCYSTEINE
     Indication: COVID-19
     Dosage: UNK
     Route: 065
  8. VITAMIN C [Concomitant]
     Active Substance: ASCORBIC ACID
     Indication: COVID-19
     Dosage: UNK
     Route: 065
  9. ZINC [Concomitant]
     Active Substance: ZINC
     Indication: COVID-19
     Dosage: UNK
     Route: 065
  10. REMDESIVIR [Concomitant]
     Active Substance: REMDESIVIR
     Indication: COVID-19
     Dosage: UNK
     Route: 065
  11. VANCOMYCIN [Concomitant]
     Active Substance: VANCOMYCIN
     Indication: Evidence based treatment
     Dosage: UNK
     Route: 065
  12. CEFEPIME [Concomitant]
     Active Substance: CEFEPIME HYDROCHLORIDE
     Indication: Evidence based treatment
     Dosage: UNK
     Route: 065

REACTIONS (3)
  - Septic shock [Unknown]
  - Drug ineffective for unapproved indication [Unknown]
  - Off label use [Unknown]
